FAERS Safety Report 6956928-1 (Version None)
Quarter: 2010Q3

REPORT INFORMATION
  Report Type: 
  Country: None (occurrence: None)
  Receive Date: 20100830
  Receipt Date: 20100820
  Transmission Date: 20110219
  Serious: Yes (Hospitalization)
  Sender: FDA-Public Use
  Company Number: ES-AMGEN-QUU434023

PATIENT
  Age: 53 Year
  Sex: Female

DRUGS (1)
  1. ENBREL [Suspect]
     Indication: RHEUMATOID ARTHRITIS
     Dosage: UNSPECIFIED FRECUENCY OF 25 MG INJECTION
     Route: 065
     Dates: start: 20100302, end: 20100409

REACTIONS (6)
  - ANGIOEDEMA [None]
  - COUGH [None]
  - EAR PAIN [None]
  - ODYNOPHAGIA [None]
  - PURPURA [None]
  - THROAT IRRITATION [None]
